FAERS Safety Report 15390169 (Version 1)
Quarter: 2018Q3

REPORT INFORMATION
  Report Type: Spontaneous
  Country: ES (occurrence: ES)
  Receive Date: 20180917
  Receipt Date: 20180917
  Transmission Date: 20181010
  Serious: Yes (Other)
  Sender: FDA-Public Use
  Company Number: PHHY2018ES094178

PATIENT
  Sex: Female

DRUGS (2)
  1. FOLIC ACID. [Concomitant]
     Active Substance: FOLIC ACID
     Indication: PSORIASIS
     Dosage: UNK UNK, QW
     Route: 048
  2. METHOTREXATE. [Suspect]
     Active Substance: METHOTREXATE
     Indication: PSORIASIS
     Dosage: 25 MG, UNK
     Route: 065

REACTIONS (10)
  - Anaemia macrocytic [Recovered/Resolved]
  - Neutropenia [Recovered/Resolved]
  - Pain [Recovered/Resolved]
  - Ulcer [Recovered/Resolved]
  - Toxicity to various agents [Unknown]
  - Odynophagia [Recovered/Resolved]
  - Hypophagia [Unknown]
  - Renal impairment [Recovered/Resolved]
  - Mouth ulceration [Recovered/Resolved]
  - Thrombocytopenia [Recovered/Resolved]
